FAERS Safety Report 24752866 (Version 1)
Quarter: 2024Q4

REPORT INFORMATION
  Report Type: Spontaneous
  Country: JP (occurrence: JP)
  Receive Date: 20241219
  Receipt Date: 20241219
  Transmission Date: 20250115
  Serious: Yes (Death)
  Sender: SUNOVION
  Company Number: JP-SUMITOMO PHARMA SWITZERLAND GMBH-2024SPA006465

PATIENT

DRUGS (1)
  1. VIBEGRON [Suspect]
     Active Substance: VIBEGRON
     Indication: Hypertonic bladder
     Dosage: UNK
     Route: 048

REACTIONS (1)
  - Death [Fatal]
